FAERS Safety Report 16535630 (Version 3)
Quarter: 2019Q4

REPORT INFORMATION
  Report Type: Spontaneous
  Country: US (occurrence: US)
  Receive Date: 20190705
  Receipt Date: 20191011
  Transmission Date: 20200122
  Serious: No
  Sender: FDA-Public Use
  Company Number: US-PFIZER INC-2019285958

PATIENT
  Age: 66 Year
  Sex: Male

DRUGS (1)
  1. INLYTA [Suspect]
     Active Substance: AXITINIB
     Indication: ALVEOLAR SOFT PART SARCOMA
     Dosage: 5 MG, 2X/DAY

REACTIONS (2)
  - Off label use [Unknown]
  - Product use in unapproved indication [Unknown]
